FAERS Safety Report 4576697-2 (Version None)
Quarter: 2005Q1

REPORT INFORMATION
  Report Type: 
  Country: None (occurrence: None)
  Receive Date: 20050210
  Receipt Date: 20050106
  Transmission Date: 20050727
  Serious: Yes (Death)
  Sender: FDA-Public Use
  Company Number: CA-ABBOTT-05P-028-0285834-00

PATIENT
  Sex: Male

DRUGS (2)
  1. MAVIK [Suspect]
     Indication: HYPERTENSION
     Route: 048
     Dates: start: 20041018, end: 20041101
  2. BEZAFIBRATE [Concomitant]
     Indication: HYPERCHOLESTEROLAEMIA
     Route: 048
     Dates: start: 20041014

REACTIONS (1)
  - LUNG NEOPLASM MALIGNANT [None]
